FAERS Safety Report 25920249 (Version 1)
Quarter: 2025Q4

REPORT INFORMATION
  Report Type: Spontaneous
  Country: US (occurrence: None)
  Receive Date: 20251014
  Receipt Date: 20251014
  Transmission Date: 20260118
  Serious: Yes (Hospitalization)
  Sender: FDA-CTU
  Company Number: None

PATIENT
  Sex: Male

DRUGS (6)
  1. PULMOZYME [Suspect]
     Active Substance: DORNASE ALFA
     Indication: Failure to thrive
     Dosage: INHALE 1 VIAL (2.5 ML) VIA NEBULIZER ONCE DAILY
     Route: 055
     Dates: start: 20210702
  2. CYPROHEPTADINE HYDROCHLORIDE [Concomitant]
     Active Substance: CYPROHEPTADINE HYDROCHLORIDE
  3. MULTIVITAMIN CHW CHILDREN [Concomitant]
  4. TOBRAMYCIN [Concomitant]
     Active Substance: TOBRAMYCIN
  5. URSODIOL CAP 300MG [Concomitant]
  6. ZENPEP CAP 40000 [Concomitant]

REACTIONS (3)
  - Oropharyngeal pain [None]
  - Loss of personal independence in daily activities [None]
  - Poor quality sleep [None]
